FAERS Safety Report 8062362-6 (Version None)
Quarter: 2012Q1

REPORT INFORMATION
  Report Type: 
  Country: None (occurrence: None)
  Receive Date: 20120113
  Receipt Date: 20120105
  Transmission Date: 20120608
  Serious: Yes (Life-Threatening, Other)
  Sender: FDA-Public Use
  Company Number: AUR-APL-2012-00241

PATIENT
  Age: 87 Year
  Sex: Male

DRUGS (7)
  1. ALENDRONIC ACID (ALENDRONIC ACID) [Suspect]
     Indication: PROPHYLAXIS
     Dosage: (70 MG),ORAL
     Route: 048
     Dates: start: 20100901, end: 20111229
  2. LANSOPRAZOLE [Concomitant]
  3. CALCICHEW D3 (LEKOVIT CA) [Concomitant]
  4. FLUOXETINE [Concomitant]
  5. PREDNISOLONE [Concomitant]
  6. ASPIRIN [Concomitant]
  7. FOLIC ACID [Concomitant]

REACTIONS (3)
  - OSTEONECROSIS OF JAW [None]
  - ARTERIAL INJURY [None]
  - ARTERIAL HAEMORRHAGE [None]
